FAERS Safety Report 6377486-9 (Version None)
Quarter: 2009Q3

REPORT INFORMATION
  Report Type: 
  Country: None (occurrence: None)
  Receive Date: 20090925
  Receipt Date: 20090916
  Transmission Date: 20100115
  Serious: Yes (Life-Threatening, Disabling)
  Sender: FDA-Public Use
  Company Number: DK-JNJFOC-20090805994

PATIENT
  Sex: Female
  Weight: 51 kg

DRUGS (6)
  1. REMICADE [Suspect]
     Indication: CROHN'S DISEASE
     Route: 042
  2. HUMIRA [Interacting]
     Indication: CROHN'S DISEASE
     Route: 058
  3. ORENCIA [Interacting]
     Indication: CROHN'S DISEASE
     Route: 042
  4. AZATHIOPRIN [Interacting]
     Indication: CROHN'S DISEASE
  5. PLACEBO [Interacting]
     Indication: CROHN'S DISEASE
     Route: 042
  6. PREDNISONE TAB [Concomitant]

REACTIONS (2)
  - COLON CANCER METASTATIC [None]
  - DRUG INTERACTION [None]
